FAERS Safety Report 8268628-9 (Version None)
Quarter: 2012Q2

REPORT INFORMATION
  Report Type: 
  Country: None (occurrence: None)
  Receive Date: 20120409
  Receipt Date: 20120403
  Transmission Date: 20120825
  Serious: Yes (Death, Life-Threatening)
  Sender: FDA-Public Use
  Company Number: TW-CELGENEUS-153-CCAZA-12030474

PATIENT
  Sex: Male
  Weight: 53.5 kg

DRUGS (85)
  1. AZACITIDINE [Suspect]
     Indication: ACUTE MYELOID LEUKAEMIA
     Dosage: 75 MILLIGRAM/SQ. METER
     Route: 058
     Dates: start: 20111216, end: 20111222
  2. ALLERMIN [Concomitant]
     Dosage: 1 AMP
     Route: 041
     Dates: start: 20120122, end: 20120223
  3. LEVOFLOXACIN [Concomitant]
     Dosage: 750 MILLIGRAM
     Route: 041
     Dates: start: 20120127, end: 20120210
  4. SODIUM CHLORIDE [Concomitant]
     Dosage: 500 CC
     Route: 041
     Dates: start: 20120130, end: 20120131
  5. SEROQUEL [Concomitant]
     Dosage: 25 MILLIGRAM
     Route: 048
     Dates: start: 20120131, end: 20120212
  6. LASIX [Concomitant]
     Dosage: 1 AMP/20MG/2ML
     Route: 041
     Dates: start: 20120214, end: 20120215
  7. SOLU-CORTEF [Concomitant]
     Dosage: 100 MILLIGRAM
     Route: 041
     Dates: start: 20120211, end: 20120213
  8. TRANSAMINE CAP [Concomitant]
     Dosage: 1 AMP
     Route: 041
     Dates: start: 20120214, end: 20120215
  9. BININ-U [Concomitant]
     Dosage: 0.5 TAB
     Route: 048
     Dates: start: 20120216, end: 20120223
  10. COMBIVENT [Concomitant]
     Dosage: 1 VIAL
     Route: 030
     Dates: start: 20120222, end: 20120222
  11. CODEINE PHOSPHATE [Concomitant]
     Dosage: 30 MILLIGRAM
     Route: 048
     Dates: start: 20120212, end: 20120214
  12. ASTOMIN [Concomitant]
     Dosage: 10 MILLIGRAM
     Route: 048
     Dates: start: 20120123, end: 20120124
  13. TRAMADOL HYDROCHLORIDE [Concomitant]
     Dosage: 0.5 AMP
     Route: 041
     Dates: start: 20120124, end: 20120206
  14. LEVOFLOXACIN [Concomitant]
     Dosage: 750 MILLIGRAM
     Route: 041
     Dates: start: 20120127, end: 20120128
  15. LEVOFLOXACIN [Concomitant]
     Dosage: 500 MILLIGRAM
     Route: 041
     Dates: start: 20120213, end: 20120214
  16. SENOKOT [Concomitant]
     Dosage: 15 MILLIGRAM
     Route: 048
     Dates: start: 20120131, end: 20120212
  17. NEXIUM [Concomitant]
     Dosage: 1 TAB
     Route: 048
     Dates: start: 20120204, end: 20120205
  18. POTASSIUM CHLORIDE [Concomitant]
     Dosage: 20 CC
     Route: 041
     Dates: start: 20120220, end: 20120220
  19. LASIX [Concomitant]
     Dosage: 1 AMP/20MG/2ML
     Route: 041
     Dates: start: 20120204, end: 20120205
  20. NEOMYCIN SULFATE TAB [Concomitant]
     Dosage: X1 TUB
     Route: 065
     Dates: start: 20120212, end: 20120223
  21. TYGACIL [Concomitant]
     Dosage: 100 MILLIGRAM
     Route: 041
     Dates: start: 20120213, end: 20120214
  22. MEGEST [Concomitant]
     Dosage: X1 BOT
     Route: 048
     Dates: start: 20120218, end: 20120219
  23. DOPAMINE HYDROCHLORIDE [Concomitant]
     Dosage: 400 MILLIGRAM
     Route: 041
     Dates: start: 20120223, end: 20120223
  24. DOXABEN [Concomitant]
     Dosage: 2 MILLIGRAM
     Route: 048
     Dates: start: 20120206, end: 20120207
  25. CODEINE PHOSPHATE [Concomitant]
     Dosage: 30 MILLIGRAM
     Route: 048
     Dates: start: 20120206, end: 20120207
  26. NYSTATIN [Concomitant]
     Dosage: 1 CAP
     Route: 048
     Dates: start: 20120130, end: 20120223
  27. POTASSIUM CHLORIDE [Concomitant]
     Dosage: 20 CC
     Route: 041
     Dates: start: 20120217, end: 20120218
  28. HEPAN [Concomitant]
     Dosage: 0.5 TAB
     Route: 048
     Dates: start: 20120204, end: 20120212
  29. ALLEGRA [Concomitant]
     Route: 048
     Dates: start: 20120208, end: 20120218
  30. SOLU-CORTEF [Concomitant]
     Dosage: 100 MILLIGRAM
     Route: 041
     Dates: start: 20120222, end: 20120223
  31. TRANSAMINE CAP [Concomitant]
     Dosage: 1 AMP
     Route: 041
     Dates: start: 20120213, end: 20120218
  32. LIPOVENOES [Concomitant]
     Dosage: 1 BOT
     Route: 041
     Dates: start: 20120214, end: 20120214
  33. VITAGEN [Concomitant]
     Dosage: 250CC
     Route: 041
     Dates: start: 20120222, end: 20120223
  34. CODEINE PHOSPHATE [Concomitant]
     Dosage: 60 MILLIGRAM
     Route: 048
     Dates: start: 20120123, end: 20120124
  35. CODEINE PHOSPHATE [Concomitant]
     Dosage: 30 MILLIGRAM
     Route: 048
     Dates: start: 20120206, end: 20120212
  36. LEVOFLOXACIN [Concomitant]
     Dosage: 500 MILLIGRAM
     Route: 041
     Dates: start: 20120213, end: 20120223
  37. MESYREL [Concomitant]
     Route: 048
     Dates: start: 20120129, end: 20120130
  38. SODIUM CHLORIDE [Concomitant]
     Dosage: 500 CC
     Route: 041
     Dates: start: 20120216, end: 20120217
  39. NEXIUM [Concomitant]
     Route: 041
     Dates: start: 20120201, end: 20120203
  40. NEXIUM [Concomitant]
     Dosage: 1 TAB
     Route: 048
     Dates: start: 20120204, end: 20120215
  41. POTASSIUM CHLORIDE [Concomitant]
     Dosage: 20 CC
     Route: 041
     Dates: start: 20120201, end: 20120203
  42. LASIX [Concomitant]
     Dosage: 1 AMP/20MG/2ML
     Route: 041
     Dates: start: 20120222, end: 20120223
  43. ALBUMIN (HUMAN) [Concomitant]
     Dosage: 1 BOTTLE
     Route: 041
     Dates: start: 20120207, end: 20120210
  44. FLUR DI FEN [Concomitant]
     Dosage: X4
     Route: 065
     Dates: start: 20120210, end: 20120217
  45. SOLU-CORTEF [Concomitant]
     Dosage: 100 MILLIGRAM
     Route: 041
     Dates: start: 20120211, end: 20120212
  46. SOLU-CORTEF [Concomitant]
     Dosage: 50 MILLIGRAM
     Route: 041
     Dates: start: 20120216, end: 20120217
  47. DOXABEN [Concomitant]
     Dosage: 2 MILLIGRAM
     Route: 048
     Dates: start: 20120130, end: 20120212
  48. ASTOMIN [Concomitant]
     Dosage: 10 MILLIGRAM
     Route: 048
     Dates: start: 20120127, end: 20120210
  49. DEXTROSE [Concomitant]
     Dosage: 1000 CC
     Route: 041
     Dates: start: 20120130, end: 20120212
  50. POTASSIUM CHLORIDE [Concomitant]
     Dosage: 20 CC
     Route: 041
     Dates: start: 20120217, end: 20120220
  51. SOLU-CORTEF [Concomitant]
     Dosage: 100 MILLIGRAM
     Route: 041
     Dates: start: 20120215, end: 20120216
  52. CODEINE PHOSPHATE [Concomitant]
     Dosage: 60 MILLIGRAM
     Route: 048
     Dates: start: 20120130, end: 20120206
  53. SENOKOT [Concomitant]
     Dosage: 15 MILLIGRAM
     Route: 048
     Dates: start: 20120212, end: 20120215
  54. POTASSIUM CHLORIDE [Concomitant]
     Dosage: 10 CC
     Route: 041
     Dates: start: 20120201, end: 20120202
  55. AMINOL-V [Concomitant]
     Route: 041
     Dates: start: 20120204, end: 20120207
  56. AMINOL-V [Concomitant]
     Route: 041
     Dates: start: 20120220, end: 20120223
  57. COLISTIN SULFATE [Concomitant]
     Route: 065
     Dates: start: 20120205, end: 20120206
  58. SOLU-CORTEF [Concomitant]
     Dosage: 100 MILLIGRAM
     Route: 041
     Dates: start: 20120219, end: 20120221
  59. SOLU-CORTEF [Concomitant]
     Dosage: 100 MILLIGRAM
     Route: 041
     Dates: start: 20120221, end: 20120222
  60. TRANSAMINE CAP [Concomitant]
     Dosage: 2 AMP
     Route: 041
     Dates: start: 20120218, end: 20120223
  61. LIPOVENOES [Concomitant]
     Dosage: 1 BOT
     Route: 041
     Dates: start: 20120214, end: 20120220
  62. ZINC OXIDE [Concomitant]
     Dosage: X1 TUB
     Dates: start: 20120216, end: 20120223
  63. VITAGEN [Concomitant]
     Dosage: 250CC
     Route: 041
     Dates: start: 20120222, end: 20120222
  64. MORPHINE [Concomitant]
     Dosage: 10 MILLIGRAM
     Route: 041
     Dates: start: 20120222, end: 20120223
  65. SOLU-MEDROL [Concomitant]
     Dosage: 125 MILLIGRAM
     Route: 041
     Dates: start: 20120222, end: 20120223
  66. AZACITIDINE [Suspect]
     Dosage: 50 MILLIGRAM/SQ. METER
     Route: 058
     Dates: start: 20120206, end: 20120212
  67. ASTOMIN [Concomitant]
     Dosage: 10 MILLIGRAM
     Route: 048
     Dates: start: 20120206, end: 20120207
  68. LIPOFUNDIN MCT/LCT [Concomitant]
     Dosage: 1 BOT
     Route: 041
     Dates: start: 20120124, end: 20120203
  69. SEROQUEL [Concomitant]
     Dosage: 0.5
     Route: 048
     Dates: start: 20120130, end: 20120131
  70. TYGACIL [Concomitant]
     Route: 041
     Dates: start: 20120213, end: 20120223
  71. PONCOLIN [Concomitant]
     Dosage: X1 BOT
     Route: 048
     Dates: start: 20120217, end: 20120218
  72. DOXABEN [Concomitant]
     Dosage: 2 MILLIGRAM
     Route: 048
     Dates: start: 20120123, end: 20120124
  73. SODIUM CHLORIDE [Concomitant]
     Dosage: 500 CC
     Route: 041
     Dates: start: 20120217, end: 20120218
  74. MEPAM [Concomitant]
     Dosage: 1000 MILLIGRAM
     Route: 041
     Dates: start: 20120130, end: 20120213
  75. MYCAMINE [Concomitant]
     Dosage: 100 MILLIGRAM
     Route: 041
     Dates: start: 20120130, end: 20120213
  76. NEXIUM [Concomitant]
     Route: 041
     Dates: start: 20120201, end: 20120202
  77. LASIX [Concomitant]
     Dosage: 1 AMP/20MG/2ML
     Route: 041
     Dates: start: 20120206, end: 20120207
  78. LASIX [Concomitant]
     Dosage: 0.5 AMP/20MG/2ML
     Route: 041
     Dates: start: 20120220, end: 20120221
  79. COLISTIN SULFATE [Concomitant]
     Route: 065
     Dates: start: 20120205, end: 20120213
  80. SOLU-CORTEF [Concomitant]
     Dosage: 100 MILLIGRAM
     Route: 041
     Dates: start: 20120214, end: 20120215
  81. EPINEPHRINE [Concomitant]
     Dosage: 1 AMP
     Route: 065
     Dates: start: 20120213, end: 20120223
  82. KATIMIN [Concomitant]
     Dosage: 1 AMP
     Route: 041
     Dates: start: 20120214, end: 20120215
  83. DISOLIN [Concomitant]
     Dosage: 0.5 AMP
     Route: 041
     Dates: start: 20120216, end: 20120223
  84. DEPYRETIN [Concomitant]
     Dosage: 1 TAB
     Route: 048
     Dates: start: 20120219, end: 20120223
  85. LEVOPHED [Concomitant]
     Dosage: 2 AMP
     Route: 041
     Dates: start: 20120222, end: 20120223

REACTIONS (2)
  - NEUTROPENIA [None]
  - PNEUMONIA [None]
